FAERS Safety Report 9146314 (Version 1)
Quarter: 2013Q1

REPORT INFORMATION
  Report Type: Spontaneous
  Country: US (occurrence: None)
  Receive Date: 20130208
  Receipt Date: 20130208
  Transmission Date: 20140127
  Serious: Yes (Death)
  Sender: FDA-Public Use
  Company Number: 2013020007

PATIENT
  Age: 51 Year
  Sex: Female

DRUGS (4)
  1. FENTANYL (FENTANYL) [Suspect]
     Indication: COMPLETED SUICIDE
  2. TRAMADOL (TRAMADOL) [Suspect]
     Indication: COMPLETED SUICIDE
  3. MORPHINE [Suspect]
     Indication: COMPLETED SUICIDE
  4. HYDROMORPHONE [Suspect]
     Indication: COMPLETED SUICIDE

REACTIONS (3)
  - Cardio-respiratory arrest [None]
  - Intentional drug misuse [None]
  - Completed suicide [None]
